FAERS Safety Report 15902186 (Version 1)
Quarter: 2019Q1

REPORT INFORMATION
  Report Type: Spontaneous
  Country: DE (occurrence: DE)
  Receive Date: 20190201
  Receipt Date: 20190201
  Transmission Date: 20190417
  Serious: Yes (Other)
  Sender: FDA-Public Use
  Company Number: DE-SHIRE-DE201901696AA

PATIENT

DRUGS (2)
  1. ADYNOVI [Suspect]
     Active Substance: ANTIHEMOPHILIC FACTOR, HUMAN RECOMBINANT
     Indication: HAEMORRHAGE
     Dosage: 2000 INTERNATIONAL UNIT
     Route: 065
  2. ADYNOVI [Suspect]
     Active Substance: ANTIHEMOPHILIC FACTOR, HUMAN RECOMBINANT
     Dosage: 1000 INTERNATIONAL UNIT
     Route: 065

REACTIONS (1)
  - Injection site haemorrhage [Unknown]
